FAERS Safety Report 17800865 (Version 3)
Quarter: 2021Q4

REPORT INFORMATION
  Report Type: Report from Study
  Country: US (occurrence: US)
  Receive Date: 20200518
  Receipt Date: 20211006
  Transmission Date: 20220303
  Serious: No
  Sender: FDA-Public Use
  Company Number: US-EUSA PHARMA (NETHERLANDS) B.V.-2020US000095

PATIENT

DRUGS (2)
  1. SILTUXIMAB [Suspect]
     Active Substance: SILTUXIMAB
     Indication: Castleman^s disease
     Dosage: UNK
     Route: 065
     Dates: start: 20180627, end: 20190612
  2. SILTUXIMAB [Suspect]
     Active Substance: SILTUXIMAB
     Dosage: UNK
     Route: 065
     Dates: start: 20191023

REACTIONS (2)
  - Nausea [Recovered/Resolved]
  - Vomiting [Recovered/Resolved]

NARRATIVE: CASE EVENT DATE: 20191023
